FAERS Safety Report 18598067 (Version 2)
Quarter: 2021Q1

REPORT INFORMATION
  Report Type: Other
  Country: US (occurrence: US)
  Receive Date: 20201209
  Receipt Date: 20210104
  Transmission Date: 20210419
  Serious: No
  Sender: FDA-Public Use
  Company Number: US-AMAG PHARMACEUTICALS, INC.-AMAG202004002

PATIENT
  Age: 27 Year
  Sex: Female

DRUGS (2)
  1. PRENATAL VITAMIN [Concomitant]
     Active Substance: VITAMINS
     Indication: PRENATAL CARE
     Dates: start: 20201007
  2. MAKENA [Suspect]
     Active Substance: HYDROXYPROGESTERONE CAPROATE
     Indication: PREMATURE DELIVERY
     Dosage: 275MG/1.1ML
     Route: 058
     Dates: start: 20201110

REACTIONS (2)
  - Injection site pain [Not Recovered/Not Resolved]
  - Limb discomfort [Not Recovered/Not Resolved]

NARRATIVE: CASE EVENT DATE: 20201110
